FAERS Safety Report 25420655 (Version 2)
Quarter: 2025Q2

REPORT INFORMATION
  Report Type: Spontaneous
  Country: UG (occurrence: UG)
  Receive Date: 20250611
  Receipt Date: 20250619
  Transmission Date: 20250716
  Serious: Yes (Death, Hospitalization, Other)
  Sender: SANOFI AVENTIS
  Company Number: UG-SA-2025SA163801

PATIENT
  Age: 32 Year
  Sex: Male
  Weight: 50 kg

DRUGS (3)
  1. FEXINIDAZOLE [Suspect]
     Active Substance: FEXINIDAZOLE
     Indication: African trypanosomiasis
     Dates: start: 20241103
  2. FEXINIDAZOLE [Suspect]
     Active Substance: FEXINIDAZOLE
     Dates: start: 20241103, end: 20241112
  3. PANADOL [Concomitant]
     Active Substance: ACETAMINOPHEN
     Indication: Analgesic therapy
     Dates: start: 20241111, end: 20241114

REACTIONS (10)
  - African trypanosomiasis [Fatal]
  - Nervous system disorder [Fatal]
  - Pyrexia [Fatal]
  - Seizure [Fatal]
  - Musculoskeletal stiffness [Fatal]
  - Loss of consciousness [Fatal]
  - Treatment failure [Fatal]
  - Condition aggravated [Fatal]
  - Constipation [Recovered/Resolved]
  - Balanoposthitis [Recovered/Resolved]

NARRATIVE: CASE EVENT DATE: 20241106
